FAERS Safety Report 24016397 (Version 1)
Quarter: 2024Q2

REPORT INFORMATION
  Report Type: Spontaneous
  Country: US (occurrence: None)
  Receive Date: 20240625
  Receipt Date: 20240625
  Transmission Date: 20240717
  Serious: No
  Sender: FDA-Public Use
  Company Number: None

PATIENT
  Age: 89 Year
  Sex: Female

DRUGS (1)
  1. DUPIXENT [Suspect]
     Active Substance: DUPILUMAB

REACTIONS (5)
  - Swelling face [None]
  - Periorbital swelling [None]
  - Arthralgia [None]
  - Mobility decreased [None]
  - Hypersensitivity [None]

NARRATIVE: CASE EVENT DATE: 20240624
